FAERS Safety Report 6259332-7 (Version None)
Quarter: 2009Q3

REPORT INFORMATION
  Report Type: 
  Country: None (occurrence: None)
  Receive Date: 20090706
  Receipt Date: 20090618
  Transmission Date: 20100115
  Serious: Yes (Hospitalization, Other)
  Sender: FDA-Public Use
  Company Number: A-US2009-23412

PATIENT
  Age: 55 Year
  Sex: Female

DRUGS (14)
  1. TRACLEER [Suspect]
     Indication: PULMONARY ARTERIAL HYPERTENSION
     Dosage: 125 MG, BID, ORAL; 62.5 MG, BID, ORAL
     Route: 048
     Dates: start: 20080809, end: 20080901
  2. TRACLEER [Suspect]
     Indication: PULMONARY ARTERIAL HYPERTENSION
     Dosage: 125 MG, BID, ORAL; 62.5 MG, BID, ORAL
     Route: 048
     Dates: start: 20080901, end: 20090101
  3. SPIRONOLACTONE [Concomitant]
  4. PRILOSEC [Concomitant]
  5. SEROQUEL [Concomitant]
  6. TOPAMAX [Concomitant]
  7. INSULIN (INSULIN) [Concomitant]
  8. PULMICORT [Concomitant]
  9. GLUCOPHAGE [Concomitant]
  10. DIOVAN (VALSARTAN, HYDROCHLOROTHIAZIDE) [Concomitant]
  11. EFFEXOR [Concomitant]
  12. MIRAPEX [Concomitant]
  13. NADOLOL [Concomitant]
  14. SPIRIVA [Concomitant]

REACTIONS (5)
  - ABDOMINAL PAIN [None]
  - GASTROINTESTINAL HAEMORRHAGE [None]
  - HEPATIC CIRRHOSIS [None]
  - HEPATIC STEATOSIS [None]
  - OFF LABEL USE [None]
